FAERS Safety Report 5175315-2 (Version None)
Quarter: 2006Q4

REPORT INFORMATION
  Report Type: 
  Country: None (occurrence: None)
  Receive Date: 20061212
  Receipt Date: 20061212
  Transmission Date: 20070319
  Serious: Yes (Hospitalization)
  Sender: FDA-Public Use
  Company Number: None

PATIENT
  Sex: Male
  Weight: 83 kg

DRUGS (2)
  1. CETUXIMAB [Suspect]
     Indication: CHEMOTHERAPY
     Dosage: 500MG/M2 IV Q 2 WKS
     Route: 042
     Dates: start: 20061120
  2. IRINOTECAN HCL [Suspect]
     Indication: CHEMOTHERAPY
     Dosage: 180MG/M2 IV Q 2 WKS
     Route: 042
     Dates: start: 20061120

REACTIONS (2)
  - DISORIENTATION [None]
  - UROSEPSIS [None]
